FAERS Safety Report 6388438-7 (Version None)
Quarter: 2009Q4

REPORT INFORMATION
  Report Type: 
  Country: None (occurrence: None)
  Receive Date: 20091001
  Receipt Date: 20091001
  Transmission Date: 20100525
  Serious: Yes (Hospitalization)
  Sender: FDA-Public Use
  Company Number: None

PATIENT
  Age: 37 Year
  Sex: Female
  Weight: 72.5755 kg

DRUGS (1)
  1. YAZ [Suspect]
     Indication: CONTRACEPTION
     Dosage: DAILY PO
     Route: 048
     Dates: start: 20080101, end: 20090515

REACTIONS (3)
  - APHASIA [None]
  - CEREBRAL INFARCTION [None]
  - HEMIPARESIS [None]
